FAERS Safety Report 25119955 (Version 2)
Quarter: 2025Q2

REPORT INFORMATION
  Report Type: Report from Study
  Country: BR (occurrence: BR)
  Receive Date: 20250325
  Receipt Date: 20250508
  Transmission Date: 20250716
  Serious: Yes (Death, Hospitalization, Other)
  Sender: BAYER HEALTHCARE PHARMACEUTICALS INC.
  Company Number: BR-BAYER-2025A026426

PATIENT
  Age: 52 Year
  Sex: Male

DRUGS (5)
  1. NEXAVAR [Suspect]
     Active Substance: SORAFENIB
     Indication: Hepatocellular carcinoma
     Dates: start: 202401
  2. NEXAVAR [Suspect]
     Active Substance: SORAFENIB
     Indication: Hepatocellular carcinoma
     Dates: end: 20241117
  3. SIMVASTATIN [Concomitant]
     Active Substance: SIMVASTATIN
     Dates: start: 202401, end: 20241117
  4. HYDROCHLOROTHIAZIDE [Concomitant]
     Active Substance: HYDROCHLOROTHIAZIDE
     Dates: start: 202401, end: 20241117
  5. LOSARTAN [Concomitant]
     Active Substance: LOSARTAN
     Dates: start: 202401, end: 202411

REACTIONS (21)
  - Hepatic cancer [Fatal]
  - Respiratory arrest [Fatal]
  - Adverse event [Fatal]
  - Tuberculosis [None]
  - Ascites [None]
  - Hypoglycaemic unconsciousness [None]
  - Hypoglycaemic unconsciousness [None]
  - Haematochezia [None]
  - Unresponsive to stimuli [None]
  - Pruritus [Not Recovered/Not Resolved]
  - Pain [None]
  - Asthenia [None]
  - Mobility decreased [None]
  - Abnormal loss of weight [None]
  - Decreased appetite [None]
  - Nervousness [None]
  - Impatience [None]
  - Anal incontinence [None]
  - Mouth haemorrhage [None]
  - Epistaxis [None]
  - Vital capacity abnormal [None]

NARRATIVE: CASE EVENT DATE: 20241101
